FAERS Safety Report 16754107 (Version 1)
Quarter: 2019Q4

REPORT INFORMATION
  Report Type: Spontaneous
  Country: IN (occurrence: IN)
  Receive Date: 20190828
  Receipt Date: 20190828
  Transmission Date: 20200122
  Serious: Yes (Hospitalization)
  Sender: FDA-Public Use
  Company Number: None

PATIENT
  Age: 39 Year
  Sex: Female
  Weight: 104 kg

DRUGS (11)
  1. FLUCONAZOLE. [Suspect]
     Active Substance: FLUCONAZOLE
     Indication: VULVOVAGINAL CANDIDIASIS
     Dates: start: 20181109, end: 20181115
  2. SINGULAIR [Concomitant]
     Active Substance: MONTELUKAST SODIUM
     Dates: start: 20181129, end: 20190320
  3. DEXTROMETHORPHAN [Concomitant]
     Active Substance: DEXTROMETHORPHAN
     Dates: start: 20181129, end: 20181201
  4. IBUPROFEN. [Concomitant]
     Active Substance: IBUPROFEN
  5. COLESTIPOL [Concomitant]
     Active Substance: COLESTIPOL
     Dates: start: 20100501
  6. BACTRIM DS [Concomitant]
     Active Substance: SULFAMETHOXAZOLE\TRIMETHOPRIM
     Dates: start: 20181116, end: 20181125
  7. MIRENA [Concomitant]
     Active Substance: LEVONORGESTREL
     Dates: start: 20151127
  8. FLUTICASONE PROPIONATE. [Concomitant]
     Active Substance: FLUTICASONE PROPIONATE
     Dates: start: 20181129
  9. ZANTAC [Concomitant]
     Active Substance: RANITIDINE HYDROCHLORIDE
     Dates: end: 20190325
  10. SULFAMETHOXAZOLE W/TRIMIPRAMINE [Concomitant]
     Dates: start: 20181116, end: 20181124
  11. TRIAMTERENE. [Concomitant]
     Active Substance: TRIAMTERENE
     Dates: start: 20150501, end: 20181203

REACTIONS (1)
  - Myocarditis [None]

NARRATIVE: CASE EVENT DATE: 20181201
